FAERS Safety Report 16004085 (Version 3)
Quarter: 2019Q1

REPORT INFORMATION
  Report Type: Spontaneous
  Country: IT (occurrence: IT)
  Receive Date: 20190225
  Receipt Date: 20190302
  Transmission Date: 20190418
  Serious: Yes (Hospitalization)
  Sender: FDA-Public Use
  Company Number: IT-ACCORD-108796

PATIENT
  Age: 84 Year
  Sex: Female

DRUGS (9)
  1. LASIX [Concomitant]
     Active Substance: FUROSEMIDE
  2. CLOPIDOGREL [Suspect]
     Active Substance: CLOPIDOGREL BISULFATE
     Indication: THROMBOSIS PROPHYLAXIS
     Dates: start: 20180101, end: 20180704
  3. HUMALOG [Concomitant]
     Active Substance: INSULIN LISPRO
     Dosage: STRENGTH 100 U/ML, SOLUTION FOR INJECTION IN VIAL
  4. TAPAZOLE [Concomitant]
     Active Substance: METHIMAZOLE
  5. KANRENOL [Concomitant]
     Active Substance: CANRENOATE POTASSIUM
  6. DABIGATRAN ETEXILATE [Interacting]
     Active Substance: DABIGATRAN ETEXILATE
     Indication: ATRIAL FIBRILLATION
     Dosage: STRENGTH 75 MG
     Dates: start: 20180101, end: 20180704
  7. LANTUS [Concomitant]
     Active Substance: INSULIN GLARGINE
  8. ATORVASTATIN [Concomitant]
     Active Substance: ATORVASTATIN
  9. LENTO KALIUM [Concomitant]
     Active Substance: POTASSIUM CHLORIDE

REACTIONS (3)
  - Anaemia [Unknown]
  - Intestinal haemorrhage [Unknown]
  - Drug interaction [Unknown]

NARRATIVE: CASE EVENT DATE: 20180704
